FAERS Safety Report 5079767-8 (Version None)
Quarter: 2006Q3

REPORT INFORMATION
  Report Type: 
  Country: None (occurrence: None)
  Receive Date: 20060815
  Receipt Date: 20060317
  Transmission Date: 20061208
  Serious: No
  Sender: FDA-Public Use
  Company Number: US-GLAXOSMITHKLINE-A0597977A

PATIENT
  Age: 59 Year
  Sex: Male

DRUGS (1)
  1. TAGAMET HB 200 [Suspect]

REACTIONS (1)
  - DIARRHOEA [None]
